FAERS Safety Report 9687939 (Version 1)
Quarter: 2013Q4

REPORT INFORMATION
  Report Type: Spontaneous
  Country: ES (occurrence: ES)
  Receive Date: 20131114
  Receipt Date: 20131114
  Transmission Date: 20140711
  Serious: Yes (Other)
  Sender: FDA-Public Use
  Company Number: ES-ROXANE LABORATORIES, INC.-2013-RO-01804RO

PATIENT
  Age: 33 Year
  Sex: Male
  Weight: 80 kg

DRUGS (5)
  1. AZATHIOPRINE [Suspect]
     Indication: CROHN^S DISEASE
     Dosage: 150 MG
     Dates: start: 200512, end: 200701
  2. CLAVERSAL [Suspect]
     Indication: CROHN^S DISEASE
     Dosage: 1500 MG
     Dates: start: 200512
  3. VITAMIN B12 [Suspect]
     Indication: CROHN^S DISEASE
     Route: 030
  4. FOLIC ACID [Suspect]
     Indication: CROHN^S DISEASE
  5. IRON [Suspect]
     Indication: CROHN^S DISEASE
     Route: 048

REACTIONS (2)
  - Drug-induced liver injury [Unknown]
  - Nodular regenerative hyperplasia [Unknown]
